FAERS Safety Report 4310701-1 (Version None)
Quarter: 2004Q1

REPORT INFORMATION
  Report Type: 
  Country: None (occurrence: None)
  Receive Date: 20040301
  Receipt Date: 20031211
  Transmission Date: 20041129
  Serious: No
  Sender: FDA-Public Use
  Company Number: WAES 0312USA01292

PATIENT
  Sex: Female

DRUGS (2)
  1. ZETIA [Suspect]
     Indication: HYPERCHOLESTEROLAEMIA
     Dosage: 10 MG, UNK, PO
     Route: 048
  2. SYNTHROID [Concomitant]

REACTIONS (1)
  - CONSTIPATION [None]
